FAERS Safety Report 5192542-9 (Version None)
Quarter: 2006Q4

REPORT INFORMATION
  Report Type: 
  Country: None (occurrence: None)
  Receive Date: 20061220
  Receipt Date: 20061212
  Transmission Date: 20070319
  Serious: Yes (Death)
  Sender: FDA-Public Use
  Company Number: B0412284A

PATIENT
  Age: 6 Year
  Sex: Female

DRUGS (2)
  1. VENTOLIN [Suspect]
     Indication: ASTHMA
     Dosage: 100 MCG/INHALED
     Route: 055
  2. FLOVENT [Concomitant]
     Indication: ASTHMA
     Dosage: 125 MCG/ INHALED
     Route: 055

REACTIONS (7)
  - CARDIAC ARREST [None]
  - DRUG INEFFECTIVE [None]
  - FALL [None]
  - HYPERCAPNIA [None]
  - METABOLIC ACIDOSIS [None]
  - MYDRIASIS [None]
  - RESPIRATORY ACIDOSIS [None]
